FAERS Safety Report 9233464 (Version 1)
Quarter: 2013Q2

REPORT INFORMATION
  Report Type: Spontaneous
  Country: US (occurrence: US)
  Receive Date: 20130416
  Receipt Date: 20130416
  Transmission Date: 20140414
  Serious: No
  Sender: FDA-Public Use
  Company Number: US-MYLANLABS-2013S1003605

PATIENT
  Age: 56 Year
  Sex: Female
  Weight: 71.67 kg

DRUGS (2)
  1. PAROXETINE TABLETS USP [Suspect]
     Route: 048
     Dates: start: 2011
  2. XANAX [Concomitant]

REACTIONS (1)
  - Nightmare [Not Recovered/Not Resolved]
